FAERS Safety Report 6408838-6 (Version None)
Quarter: 2009Q4

REPORT INFORMATION
  Report Type: 
  Country: None (occurrence: None)
  Receive Date: 20091021
  Receipt Date: 20091012
  Transmission Date: 20100525
  Serious: Yes (Hospitalization, Other)
  Sender: FDA-Public Use
  Company Number: DE-ELI_LILLY_AND_COMPANY-DE200806006367

PATIENT
  Sex: Male
  Weight: 164 kg

DRUGS (18)
  1. BYETTA [Suspect]
     Indication: TYPE 2 DIABETES MELLITUS
     Dosage: 5 UG, DAILY (1/D)
     Route: 058
     Dates: start: 20071123, end: 20071123
  2. BYETTA [Suspect]
     Dosage: 5 UG, 2/D
     Route: 058
     Dates: start: 20071124, end: 20071125
  3. BYETTA [Suspect]
     Dosage: 5 UG, DAILY (1/D)
     Route: 058
     Dates: start: 20071126, end: 20071126
  4. BYETTA [Suspect]
     Dosage: 10 UG, DAILY (1/D)
     Route: 058
     Dates: start: 20071126, end: 20071126
  5. BYETTA [Suspect]
     Dosage: 10 UG, 2/D
     Route: 058
     Dates: start: 20071127, end: 20071203
  6. NEBILET [Concomitant]
     Indication: HYPERTENSION
     Dosage: 5 MG, DAILY (1/D)
     Route: 048
     Dates: start: 20000101
  7. BAYMYCARD [Concomitant]
     Indication: HYPERTENSION
     Dosage: 30 MG, DAILY (1/D)
     Route: 048
     Dates: start: 20000101, end: 20071123
  8. HCT-BETA [Concomitant]
     Dosage: 12.5 MG, DAILY (1/D)
     Route: 048
     Dates: start: 20000101, end: 20071122
  9. PROTAPHANE /01428201/ [Concomitant]
     Indication: TYPE 2 DIABETES MELLITUS
     Dosage: 12 IU, DAILY (1/D)
     Route: 058
     Dates: start: 20071122, end: 20071122
  10. ACTRAPID [Concomitant]
     Dosage: 10 IU, DAILY (1/D)
     Route: 058
     Dates: start: 20071122, end: 20071122
  11. ASPIRIN [Concomitant]
     Dosage: 100 MG, DAILY (1/D)
     Route: 048
     Dates: start: 20071123
  12. DISALUNIL [Concomitant]
     Indication: HYPERTENSION
     Dosage: 12.5 MG, DAILY (1/D)
     Route: 048
     Dates: start: 20071123
  13. SIOFOR [Concomitant]
     Indication: TYPE 2 DIABETES MELLITUS
     Dosage: 500 MG, DAILY (1/D)
     Route: 048
     Dates: start: 20071123
  14. SIOFOR [Concomitant]
     Dosage: 500 MG, 2/D
     Route: 048
     Dates: start: 20071124, end: 20071125
  15. SIOFOR [Concomitant]
     Dosage: 500 MG, DAILY (1/D)
     Route: 048
     Dates: start: 20071126, end: 20071126
  16. SIOFOR [Concomitant]
     Dosage: 500 MG, DAILY (1/D)
     Route: 048
     Dates: start: 20071129, end: 20071129
  17. SIOFOR [Concomitant]
     Dosage: 500 MG, 2/D
     Route: 048
     Dates: start: 20071130
  18. KALINOR [Concomitant]
     Indication: HYPOKALAEMIA
     Dosage: 1 D/F, 2/D
     Route: 048
     Dates: start: 20071123, end: 20071125

REACTIONS (1)
  - DRUG ERUPTION [None]
